FAERS Safety Report 17268326 (Version 1)
Quarter: 2020Q1

REPORT INFORMATION
  Report Type: Spontaneous
  Country: US (occurrence: US)
  Receive Date: 20191223
  Receipt Date: 20191223
  Transmission Date: 20200409
  Serious: Yes (Death)
  Sender: FDA-Public Use
  Company Number: None

PATIENT
  Age: 58 Year
  Sex: Female

DRUGS (16)
  1. MORPHINE [Concomitant]
     Active Substance: MORPHINE
  2. SENNA-GRX [Concomitant]
  3. NITROFURANTN [Concomitant]
     Active Substance: NITROFURANTOIN
  4. OXYCODONE [Concomitant]
     Active Substance: OXYCODONE
  5. OXYCODONE AND ACETAMINOPHEN [Concomitant]
     Active Substance: ACETAMINOPHEN\OXYCODONE HYDROCHLORIDE
  6. ONDANSETRON [Concomitant]
     Active Substance: ONDANSETRON
  7. AMOXICILLIN. [Concomitant]
     Active Substance: AMOXICILLIN
  8. FUROSEMIDE. [Concomitant]
     Active Substance: FUROSEMIDE
  9. PROCHLORPER [Concomitant]
  10. PANTOPRAZOLE [Concomitant]
     Active Substance: PANTOPRAZOLE
  11. IBUPROFEN. [Concomitant]
     Active Substance: IBUPROFEN
  12. SUCRALFATE. [Concomitant]
     Active Substance: SUCRALFATE
  13. TYKERB [Suspect]
     Active Substance: LAPATINIB DITOSYLATE
     Indication: BREAST CANCER FEMALE
     Route: 048
     Dates: start: 201908, end: 201909
  14. CHLORHEX GLU SOLUTION [Concomitant]
  15. ANASTOZOLE [Concomitant]
     Active Substance: ANASTROZOLE
  16. DEXAMETHASON [Concomitant]
     Active Substance: DEXAMETHASONE

REACTIONS (1)
  - Death [None]

NARRATIVE: CASE EVENT DATE: 201910
